FAERS Safety Report 7263024-5 (Version None)
Quarter: 2011Q1

REPORT INFORMATION
  Report Type: 
  Country: None (occurrence: None)
  Receive Date: 20110130
  Receipt Date: 20101004
  Transmission Date: 20110831
  Serious: No
  Sender: FDA-Public Use
  Company Number: US-ABBOTT-10P-163-0675428-00

PATIENT
  Age: 62 Year
  Sex: Female

DRUGS (6)
  1. ASA [Concomitant]
     Indication: PROPHYLAXIS
  2. GABAPENTIN [Concomitant]
     Indication: NEUROPATHY PERIPHERAL
  3. HUMIRA [Suspect]
     Indication: CROHN'S DISEASE
     Dates: start: 20091001
  4. DIOVAN [Concomitant]
     Indication: BLOOD PRESSURE
     Dosage: 160/25MG
  5. ADVAIR [Concomitant]
     Indication: ASTHMA
     Dosage: 100/50 BID
  6. GABAPENTIN [Concomitant]
     Indication: PLANTAR FASCIITIS

REACTIONS (3)
  - CHILLS [None]
  - PYREXIA [None]
  - HYPERHIDROSIS [None]
